FAERS Safety Report 4674056-5 (Version None)
Quarter: 2005Q2

REPORT INFORMATION
  Report Type: 
  Country: None (occurrence: None)
  Receive Date: 20050525
  Receipt Date: 20050510
  Transmission Date: 20051028
  Serious: Yes (Hospitalization)
  Sender: FDA-Public Use
  Company Number: FR_050506392

PATIENT
  Age: 67 Year
  Sex: Male

DRUGS (4)
  1. ALIMTA [Suspect]
     Indication: BRONCHIOLOALVEOLAR CARCINOMA
     Dates: start: 20041201
  2. FOLIC ACID [Concomitant]
  3. VITAMIN B-12 [Concomitant]
  4. CORTICOSTEROID NOS [Concomitant]

REACTIONS (2)
  - MUCOSAL INFLAMMATION [None]
  - PANCYTOPENIA [None]
